FAERS Safety Report 5895376-2 (Version None)
Quarter: 2008Q3

REPORT INFORMATION
  Report Type: 
  Country: None (occurrence: None)
  Receive Date: 20080923
  Receipt Date: 20080923
  Transmission Date: 20090109
  Serious: Yes (Life-Threatening, Other)
  Sender: FDA-Public Use
  Company Number: None

PATIENT
  Age: 44 Year
  Sex: Female
  Weight: 49.8957 kg

DRUGS (2)
  1. TETRACYCLINE [Suspect]
     Indication: ORAL SURGERY
     Dosage: 500MG TWICE PO
     Route: 048
     Dates: start: 20080910, end: 20080920
  2. TETRACYCLINE [Suspect]
     Indication: POSTOPERATIVE CARE
     Dosage: 500MG TWICE PO
     Route: 048
     Dates: start: 20080910, end: 20080920

REACTIONS (21)
  - AGORAPHOBIA [None]
  - ANXIETY [None]
  - CHEST DISCOMFORT [None]
  - CLAUSTROPHOBIA [None]
  - DELUSION [None]
  - DEPRESSION [None]
  - DYSPEPSIA [None]
  - FEAR [None]
  - FEELING ABNORMAL [None]
  - HYPERHIDROSIS [None]
  - IMPAIRED DRIVING ABILITY [None]
  - NAUSEA [None]
  - NERVOUSNESS [None]
  - PALPITATIONS [None]
  - PANIC ATTACK [None]
  - PARANOIA [None]
  - SENSORY DISTURBANCE [None]
  - SUICIDAL IDEATION [None]
  - THIRST [None]
  - THROAT TIGHTNESS [None]
  - TREMOR [None]
